FAERS Safety Report 9067789 (Version 1)
Quarter: 2013Q1

REPORT INFORMATION
  Report Type: Spontaneous
  Country: GB (occurrence: GB)
  Receive Date: 20130214
  Receipt Date: 20130214
  Transmission Date: 20140127
  Serious: Yes (Death, Other)
  Sender: FDA-Public Use
  Company Number: GB-ABBOTT-13P-167-1048785-00

PATIENT
  Age: 9 Month
  Sex: Female
  Weight: 8.5 kg

DRUGS (7)
  1. SODIUM VALPROATE [Suspect]
     Indication: CONVULSION
     Dosage: CUMULATIVE DOSE TO 1ST RXN:37251MG
     Route: 048
     Dates: start: 20120718, end: 20121128
  2. LEVILEX [Suspect]
     Indication: EPILEPSY
     Dosage: CUMULATIVE DOSE TO FIRST REACTION: 34090MG
     Route: 048
     Dates: start: 20120709, end: 20121128
  3. PHENYTOIN [Suspect]
     Indication: STATUS EPILEPTICUS
     Dosage: 180MG OVER 20 MINUTES
     Route: 042
     Dates: start: 20121128, end: 20121128
  4. MIDAZOLAM [Suspect]
     Indication: CONVULSION
     Dosage: 2.5MG AT 5 MINUTES AND 15 MINUTES. ROUTE OF ADMIN: BUCCAL
     Dates: start: 20121128, end: 20121128
  5. LEVETIRACETAM [Concomitant]
     Indication: PRODUCT USED FOR UNKNOWN INDICATION
  6. PARACETAMOL [Concomitant]
     Indication: PRODUCT USED FOR UNKNOWN INDICATION
  7. DIAZEPAM [Concomitant]
     Indication: PRODUCT USED FOR UNKNOWN INDICATION

REACTIONS (2)
  - Cardiac arrest [Fatal]
  - Respiratory acidosis [Fatal]
